FAERS Safety Report 7412030-6 (Version None)
Quarter: 2011Q2

REPORT INFORMATION
  Report Type: 
  Country: None (occurrence: None)
  Receive Date: 20110408
  Receipt Date: 20110408
  Transmission Date: 20111010
  Serious: Yes (Hospitalization)
  Sender: FDA-Public Use
  Company Number: None

PATIENT
  Age: 73 Year
  Sex: Male

DRUGS (1)
  1. GABAPENTIN [Suspect]
     Dates: start: 20110109

REACTIONS (3)
  - SOMNOLENCE [None]
  - CONFUSIONAL STATE [None]
  - DYSKINESIA [None]
